FAERS Safety Report 10081632 (Version 3)
Quarter: 2014Q3

REPORT INFORMATION
  Report Type: Spontaneous
  Country: IT (occurrence: None)
  Receive Date: 20140414
  Receipt Date: 20140725
  Transmission Date: 20150326
  Serious: Yes (Hospitalization, Other)
  Sender: FDA-Public Use
  Company Number: AUR-APL-2014-04268

PATIENT
  Age: 36 Year
  Sex: Male

DRUGS (5)
  1. EVEROLIMUS (EVEROLIMUS) [Concomitant]
  2. EFAVIRENZ (EFAVIRENZ) [Suspect]
     Active Substance: EFAVIRENZ
     Indication: ANTIRETROVIRAL THERAPY
     Dosage: UNKNOWN
  3. ZIDOVUDINE (ZIDOVUDINE) [Suspect]
     Active Substance: ZIDOVUDINE
     Indication: ANTIRETROVIRAL THERAPY
     Dosage: UNKNOWN
  4. LAMIVUDINA [Suspect]
     Active Substance: LAMIVUDINE
     Indication: ANTIRETROVIRAL THERAPY
     Dosage: UNKNOWN
  5. CYCLOSPORINE (CICLOSPORIN) [Concomitant]
     Active Substance: CYCLOSPORINE

REACTIONS (4)
  - Congestive cardiomyopathy [None]
  - Heart transplant [None]
  - Cardiac failure chronic [None]
  - Cardiac failure [None]
